FAERS Safety Report 5825391-6 (Version None)
Quarter: 2008Q3

REPORT INFORMATION
  Report Type: 
  Country: None (occurrence: None)
  Receive Date: 20080729
  Receipt Date: 20080724
  Transmission Date: 20090109
  Serious: Yes (Other)
  Sender: FDA-Public Use
  Company Number: GB-WYE-G01802108

PATIENT
  Sex: Male
  Weight: 83 kg

DRUGS (2)
  1. TORISEL [Suspect]
     Indication: RENAL CELL CARCINOMA
     Dosage: 25 MG
     Route: 042
     Dates: start: 20080411
  2. TORISEL [Suspect]
     Dosage: UNKNOWN
     Dates: start: 20080710

REACTIONS (4)
  - DERMATITIS EXFOLIATIVE [None]
  - PHOTOSENSITIVITY REACTION [None]
  - RASH PRURITIC [None]
  - RASH VESICULAR [None]
